FAERS Safety Report 6684086-X (Version None)
Quarter: 2010Q2

REPORT INFORMATION
  Report Type: 
  Country: None (occurrence: None)
  Receive Date: 20100416
  Receipt Date: 20100405
  Transmission Date: 20101027
  Serious: Yes (Hospitalization, Other)
  Sender: FDA-Public Use
  Company Number: PHHY2010BR21427

PATIENT
  Age: 65 Year
  Sex: Male

DRUGS (3)
  1. GLEEVEC [Suspect]
     Indication: LEUKAEMIA
     Dosage: 200 MG, UNK
     Dates: start: 20091001
  2. PURINETHOL [Concomitant]
     Dosage: UNK
  3. LADOGAL [Concomitant]

REACTIONS (6)
  - DRUG INEFFECTIVE [None]
  - ERYSIPELAS [None]
  - HAEMATOMA [None]
  - IMMUNODEFICIENCY [None]
  - SEPSIS [None]
  - THROMBOCYTOPENIA [None]
